FAERS Safety Report 10089262 (Version 1)
Quarter: 2014Q2

REPORT INFORMATION
  Report Type: Spontaneous
  Country: GB (occurrence: GB)
  Receive Date: 20140421
  Receipt Date: 20140421
  Transmission Date: 20141212
  Serious: Yes (Death)
  Sender: FDA-Public Use
  Company Number: GB-ELI_LILLY_AND_COMPANY-GB201404005342

PATIENT
  Sex: 0

DRUGS (3)
  1. PEMETREXED [Suspect]
     Indication: NON-SMALL CELL LUNG CANCER
     Dosage: 500 MG/M2, OTHER
     Route: 065
  2. CISPLATIN [Concomitant]
     Indication: NON-SMALL CELL LUNG CANCER
     Dosage: 50 MG/M2, OTHER
     Route: 065
  3. ETOPOPHOS [Concomitant]
     Indication: NON-SMALL CELL LUNG CANCER
     Dosage: 50 MG/M2, OTHER
     Route: 065

REACTIONS (1)
  - Pneumonitis [Fatal]
